FAERS Safety Report 5212616-3 (Version None)
Quarter: 2007Q1

REPORT INFORMATION
  Report Type: 
  Country: None (occurrence: None)
  Receive Date: 20070118
  Receipt Date: 20070108
  Transmission Date: 20070707
  Serious: Yes (Death)
  Sender: FDA-Public Use
  Company Number: KR-PFIZER INC-2007002733

PATIENT
  Sex: Male
  Weight: 61 kg

DRUGS (3)
  1. ZYVOX [Suspect]
     Indication: PNEUMONIA
     Route: 042
     Dates: start: 20060225, end: 20060302
  2. ZYVOX [Suspect]
     Indication: ENTEROCOCCAL INFECTION
  3. MEROPENEM [Concomitant]
     Route: 042
     Dates: start: 20060222, end: 20060322

REACTIONS (1)
  - DEATH [None]
